FAERS Safety Report 4638836-4 (Version None)
Quarter: 2005Q2

REPORT INFORMATION
  Report Type: 
  Country: None (occurrence: None)
  Receive Date: 20050418
  Receipt Date: 20050418
  Transmission Date: 20051028
  Serious: Yes (Other)
  Sender: FDA-Public Use
  Company Number: None

PATIENT
  Sex: Female
  Weight: 54.4316 kg

DRUGS (3)
  1. PROZAC [Suspect]
     Indication: ANXIETY
     Dosage: 80 MG QAM   ORAL
     Route: 048
     Dates: start: 20050101, end: 20050317
  2. PROZAC [Suspect]
     Indication: DEPRESSION
     Dosage: 80 MG QAM   ORAL
     Route: 048
     Dates: start: 20050101, end: 20050317
  3. NEXIUM [Concomitant]

REACTIONS (1)
  - ELECTROCARDIOGRAM QT CORRECTED INTERVAL PROLONGED [None]
